FAERS Safety Report 17886515 (Version 7)
Quarter: 2020Q4

REPORT INFORMATION
  Report Type: Spontaneous
  Country: US (occurrence: US)
  Receive Date: 20200611
  Receipt Date: 20201228
  Transmission Date: 20210113
  Serious: No
  Sender: FDA-Public Use
  Company Number: US-PFIZER INC-2020226393

PATIENT
  Age: 44 Year
  Sex: Female

DRUGS (1)
  1. XELJANZ [Suspect]
     Active Substance: TOFACITINIB CITRATE
     Indication: RHEUMATOID ARTHRITIS
     Dosage: 5 MG, 2X/DAY
     Route: 048
     Dates: start: 20200507, end: 2020

REACTIONS (9)
  - Heart rate irregular [Unknown]
  - Headache [Unknown]
  - Drug ineffective [Unknown]
  - Rhinorrhoea [Unknown]
  - Epigastric discomfort [Unknown]
  - Paraesthesia [Unknown]
  - Contusion [Unknown]
  - Diarrhoea [Unknown]
  - Gastroenteritis viral [Unknown]

NARRATIVE: CASE EVENT DATE: 2020
